FAERS Safety Report 7257188-7 (Version None)
Quarter: 2011Q1

REPORT INFORMATION
  Report Type: 
  Country: None (occurrence: None)
  Receive Date: 20110129
  Receipt Date: 20100622
  Transmission Date: 20110831
  Serious: No
  Sender: FDA-Public Use
  Company Number: US-ABBOTT-10P-163-0654023-00

PATIENT
  Sex: Female
  Weight: 91.708 kg

DRUGS (1)
  1. HUMIRA [Suspect]
     Indication: PSORIASIS
     Dates: start: 20090318, end: 20091201

REACTIONS (5)
  - TUBERCULOSIS [None]
  - NODULE [None]
  - MYCOBACTERIAL INFECTION [None]
  - PAIN [None]
  - ACID FAST BACILLI INFECTION [None]
